FAERS Safety Report 12212289 (Version 3)
Quarter: 2016Q2

REPORT INFORMATION
  Report Type: Spontaneous
  Country: JP (occurrence: JP)
  Receive Date: 20160325
  Receipt Date: 20160623
  Transmission Date: 20160815
  Serious: Yes (Other)
  Sender: FDA-Public Use
  Company Number: PHJP2016JP006597

PATIENT
  Age: 9 Year
  Sex: Female

DRUGS (10)
  1. TEGRETOL [Suspect]
     Active Substance: CARBAMAZEPINE
     Indication: EPILEPSY
     Dosage: 200 MG, QD
     Route: 048
     Dates: start: 20140120
  2. TEGRETOL [Suspect]
     Active Substance: CARBAMAZEPINE
     Dosage: 0.2 G, BID
     Route: 048
     Dates: start: 20160610
  3. TEGRETOL [Suspect]
     Active Substance: CARBAMAZEPINE
     Dosage: 0.24 G, QD
     Route: 048
     Dates: start: 20140201
  4. TEGRETOL [Suspect]
     Active Substance: CARBAMAZEPINE
     Dosage: 0.3 G, QD
     Route: 048
     Dates: start: 20140426
  5. TEGRETOL [Suspect]
     Active Substance: CARBAMAZEPINE
     Dosage: 0.36 G, QD
     Route: 048
     Dates: start: 20141122
  6. E KEPPRA [Concomitant]
     Active Substance: LEVETIRACETAM
     Indication: PRODUCT USED FOR UNKNOWN INDICATION
     Dosage: 0.2 G, UNK
     Route: 048
     Dates: start: 20160610
  7. E KEPPRA [Concomitant]
     Active Substance: LEVETIRACETAM
     Dosage: 0.4 G, UNK
     Route: 048
     Dates: start: 20160618
  8. TEGRETOL [Suspect]
     Active Substance: CARBAMAZEPINE
     Dosage: 0.56 G, QD
     Route: 048
     Dates: start: 20160319
  9. TEGRETOL [Suspect]
     Active Substance: CARBAMAZEPINE
     Dosage: 0.4 G, QD
     Route: 048
     Dates: start: 20150509
  10. TEGRETOL [Suspect]
     Active Substance: CARBAMAZEPINE
     Dosage: 0.5 G, QD
     Route: 048
     Dates: start: 20151130

REACTIONS (3)
  - Weight increased [Unknown]
  - Anticonvulsant drug level decreased [Unknown]
  - Seizure [Unknown]
